APPROVED DRUG PRODUCT: PREDNISOLONE
Active Ingredient: PREDNISOLONE
Strength: 5MG
Dosage Form/Route: TABLET;ORAL
Application: A218083 | Product #001 | TE Code: AB
Applicant: ZHEJIANG XIANJU PHARMACEUTICAL CO LTD
Approved: May 2, 2024 | RLD: No | RS: No | Type: RX